FAERS Safety Report 7422313-1 (Version None)
Quarter: 2011Q2

REPORT INFORMATION
  Report Type: 
  Country: None (occurrence: None)
  Receive Date: 20110419
  Receipt Date: 20110411
  Transmission Date: 20111010
  Serious: No
  Sender: FDA-Public Use
  Company Number: US-BIOGENIDEC-2009BI035791

PATIENT
  Age: 49 Year
  Sex: Female

DRUGS (1)
  1. TYSABRI [Suspect]
     Indication: MULTIPLE SCLEROSIS
     Route: 042
     Dates: start: 20070419

REACTIONS (7)
  - TREMOR [None]
  - SINUSITIS [None]
  - MOBILITY DECREASED [None]
  - GAIT DISTURBANCE [None]
  - BALANCE DISORDER [None]
  - MICTURITION URGENCY [None]
  - FATIGUE [None]
